FAERS Safety Report 20179094 (Version 2)
Quarter: 2022Q2

REPORT INFORMATION
  Report Type: Spontaneous
  Country: DE (occurrence: DE)
  Receive Date: 20211214
  Receipt Date: 20220621
  Transmission Date: 20220721
  Serious: Yes (Other)
  Sender: FDA-Public Use
  Company Number: DE-SUN PHARMACEUTICAL INDUSTRIES LTD-2021R1-320553

PATIENT
  Age: 51 Year
  Sex: Male

DRUGS (7)
  1. DOXORUBICIN [Suspect]
     Active Substance: DOXORUBICIN
     Indication: T-cell lymphoma
     Dosage: CYCLICAL
     Route: 065
  2. PREDNISONE [Suspect]
     Active Substance: PREDNISONE
     Indication: T-cell lymphoma
     Dosage: CYCLICAL
     Route: 065
  3. VINCRISTINE [Suspect]
     Active Substance: VINCRISTINE
     Indication: T-cell lymphoma
     Dosage: CYCLICAL
     Route: 065
  4. PREDNISOLONE [Suspect]
     Active Substance: PREDNISOLONE
     Indication: T-cell lymphoma
     Dosage: 7 CYCLICAL
     Route: 065
  5. RITUXIMAB [Suspect]
     Active Substance: RITUXIMAB
     Indication: T-cell lymphoma
     Dosage: CYCLICAL
     Route: 065
  6. CYCLOPHOSPHAMIDE [Suspect]
     Active Substance: CYCLOPHOSPHAMIDE
     Indication: T-cell lymphoma
     Dosage: CYCLICAL
     Route: 065
  7. ETOPOSIDE [Suspect]
     Active Substance: ETOPOSIDE
     Indication: T-cell lymphoma
     Dosage: CYCLICAL
     Route: 065

REACTIONS (7)
  - Eye disorder [Unknown]
  - Optic ischaemic neuropathy [Unknown]
  - Retinal artery occlusion [Unknown]
  - Toxicity to various agents [Unknown]
  - Blindness [Unknown]
  - Retinal haemorrhage [Unknown]
  - Disorder of orbit [Unknown]
